FAERS Safety Report 18483453 (Version 1)
Quarter: 2020Q4

REPORT INFORMATION
  Report Type: Spontaneous
  Country: US (occurrence: US)
  Receive Date: 20201109
  Receipt Date: 20201109
  Transmission Date: 20210114
  Serious: No
  Sender: FDA-Public Use
  Company Number: US-ROCHE-2614381

PATIENT
  Sex: Female

DRUGS (1)
  1. PULMOZYME [Suspect]
     Active Substance: DORNASE ALFA
     Indication: PRODUCT USED FOR UNKNOWN INDICATION
     Dosage: ; ONGOING: YES STRENGTH: 1MG/ML
     Route: 056
     Dates: start: 20191101

REACTIONS (2)
  - Product dose omission issue [Unknown]
  - No adverse event [Unknown]
